FAERS Safety Report 21266906 (Version 2)
Quarter: 2022Q3

REPORT INFORMATION
  Report Type: Spontaneous
  Country: US (occurrence: US)
  Receive Date: 20220829
  Receipt Date: 20220830
  Transmission Date: 20221027
  Serious: Yes (Other)
  Sender: FDA-Public Use
  Company Number: US-PFIZER INC-2021153382

PATIENT
  Age: 79 Year
  Sex: Female

DRUGS (3)
  1. CELEBREX [Suspect]
     Active Substance: CELECOXIB
     Indication: Rheumatoid arthritis
     Dosage: 200 MG
     Dates: start: 1999
  2. CELEBREX [Suspect]
     Active Substance: CELECOXIB
     Indication: Arthritis
  3. CELEBREX [Suspect]
     Active Substance: CELECOXIB
     Indication: Osteoarthritis

REACTIONS (4)
  - Renal failure [Unknown]
  - Arthritis [Unknown]
  - Concussion [Unknown]
  - Fall [Unknown]

NARRATIVE: CASE EVENT DATE: 20220801
